FAERS Safety Report 11876065 (Version 1)
Quarter: 2015Q4

REPORT INFORMATION
  Report Type: Spontaneous
  Country: US (occurrence: US)
  Receive Date: 20151229
  Receipt Date: 20151229
  Transmission Date: 20160305
  Serious: Yes (Hospitalization)
  Sender: FDA-Public Use
  Company Number: US-009507513-1512USA012516

PATIENT
  Age: 43 Year
  Sex: Female

DRUGS (4)
  1. PRINIVIL [Suspect]
     Active Substance: LISINOPRIL
     Indication: HYPERTENSION
     Dosage: UNK
     Route: 048
  2. ZOCOR [Concomitant]
     Active Substance: SIMVASTATIN
     Route: 048
  3. PRINIVIL [Suspect]
     Active Substance: LISINOPRIL
     Dosage: UNK
     Route: 048
  4. GASTROGARD [Concomitant]
     Dosage: UNK
     Route: 048

REACTIONS (1)
  - Intestinal angioedema [Recovered/Resolved]
